FAERS Safety Report 4692431-X (Version None)
Quarter: 2005Q2

REPORT INFORMATION
  Report Type: 
  Country: None (occurrence: None)
  Receive Date: 20050616
  Receipt Date: 20050602
  Transmission Date: 20051028
  Serious: Yes (Hospitalization)
  Sender: FDA-Public Use
  Company Number: 2005-01912

PATIENT
  Age: 41 Year
  Sex: Female

DRUGS (1)
  1. TRELSTAR DEPOT [Suspect]
     Indication: ENDOMETRIOSIS
     Dosage: 3.75 MG, INTRAMUSCULAR
     Route: 030
     Dates: start: 20020101

REACTIONS (2)
  - OFF LABEL USE [None]
  - PNEUMOTHORAX [None]
